FAERS Safety Report 6094621-0 (Version None)
Quarter: 2009Q1

REPORT INFORMATION
  Report Type: 
  Country: None (occurrence: None)
  Receive Date: 20090226
  Receipt Date: 20090218
  Transmission Date: 20090719
  Serious: Yes (Other)
  Sender: FDA-Public Use
  Company Number: PHEH2008US10209

PATIENT
  Sex: Male
  Weight: 97.959 kg

DRUGS (15)
  1. GLEEVEC [Suspect]
     Indication: CHRONIC MYELOID LEUKAEMIA
     Dosage: 400 MG, QD
     Route: 048
     Dates: start: 20040401
  2. GLEEVEC [Suspect]
     Dosage: 200 MG, QD
  3. GLEEVEC [Suspect]
     Dosage: 100 MG, BID
     Dates: start: 20081112
  4. GLEEVEC [Suspect]
     Dosage: 200 MG, BID
     Route: 048
     Dates: start: 20080430
  5. LANTUS [Suspect]
     Dosage: 25U QAM + 15 U QPM
     Route: 058
  6. HUMALOG [Suspect]
     Dosage: SLIDING SCALE
  7. ACIDEX [Concomitant]
     Dosage: 20 MG, QD
     Route: 048
  8. ALLOPURINOL [Concomitant]
     Dosage: 100 MG, QD
     Route: 048
  9. ENALAPRIL [Concomitant]
     Dosage: 20 MG, BID
     Route: 048
  10. HYDROCHLOROTHIAZIDE [Concomitant]
     Dosage: 25 MG, QD
     Route: 048
  11. UROCIT-K [Concomitant]
     Dosage: 1080 MG, BID
     Route: 048
  12. DARVON [Concomitant]
     Dosage: 5 MG, PRN
     Route: 048
  13. NIACIN [Concomitant]
     Dosage: 100 MG, QD
     Route: 048
  14. VICODIN [Concomitant]
  15. PERCOCET [Concomitant]

REACTIONS (11)
  - BLINDNESS [None]
  - BURNING SENSATION [None]
  - CONTUSION [None]
  - EPIGASTRIC DISCOMFORT [None]
  - FATIGUE [None]
  - HAEMATOCHEZIA [None]
  - PITTING OEDEMA [None]
  - PRURITUS [None]
  - RHINITIS [None]
  - SINUSITIS [None]
  - WEIGHT INCREASED [None]
